FAERS Safety Report 22185772 (Version 1)
Quarter: 2023Q2

REPORT INFORMATION
  Report Type: Spontaneous
  Country: US (occurrence: None)
  Receive Date: 20230406
  Receipt Date: 20230406
  Transmission Date: 20230722
  Serious: Yes (Other)
  Sender: FDA-Public Use
  Company Number: None

PATIENT
  Age: 58 Year
  Sex: Female
  Weight: 55.8 kg

DRUGS (3)
  1. LEVOFLOXACIN [Suspect]
     Active Substance: LEVOFLOXACIN
     Indication: Gastrointestinal infection
     Dosage: OTHER QUANTITY : 1 TABLET(S);?FREQUENCY : DAILY;?
     Route: 048
     Dates: start: 20230318, end: 20230322
  2. Metropol [Concomitant]
  3. Claritan D [Concomitant]

REACTIONS (9)
  - Brain fog [None]
  - Memory impairment [None]
  - Myalgia [None]
  - Arthralgia [None]
  - Gait disturbance [None]
  - Dizziness [None]
  - Tinnitus [None]
  - Headache [None]
  - Agitation [None]

NARRATIVE: CASE EVENT DATE: 20230321
